FAERS Safety Report 8152420-X (Version None)
Quarter: 2012Q1

REPORT INFORMATION
  Report Type: 
  Country: None (occurrence: None)
  Receive Date: 20120103
  Receipt Date: 20111110
  Transmission Date: 20120608
  Serious: No
  Sender: FDA-Public Use
  Company Number: AE-2011-001788

PATIENT
  Age: 54 Year
  Sex: Male
  Weight: 90.7194 kg

DRUGS (9)
  1. PEGASYS [Concomitant]
  2. ASPIRIN [Concomitant]
  3. RIBAVIRIN [Concomitant]
  4. ATENOLOL [Concomitant]
  5. ALLOPURINOL [Concomitant]
  6. PROTONIX [Concomitant]
  7. OMEPRAZOLE [Concomitant]
  8. INCIVEK [Suspect]
     Dosage: 2250 MG (750 MG,1 IN 8 HR),ORAL
     Route: 048
     Dates: start: 20110923
  9. PLAVIX [Concomitant]

REACTIONS (11)
  - GROIN PAIN [None]
  - MYALGIA [None]
  - ARTHRALGIA [None]
  - ANAL PRURITUS [None]
  - DEHYDRATION [None]
  - CHILLS [None]
  - ANAL HAEMORRHAGE [None]
  - INFLUENZA LIKE ILLNESS [None]
  - MUSCLE SPASMS [None]
  - HEADACHE [None]
  - ANORECTAL DISCOMFORT [None]
